APPROVED DRUG PRODUCT: DESIPRAMINE HYDROCHLORIDE
Active Ingredient: DESIPRAMINE HYDROCHLORIDE
Strength: 25MG
Dosage Form/Route: TABLET;ORAL
Application: A207433 | Product #002
Applicant: HERITAGE PHARMACEUTICALS INC DBA AVET PHARMACEUTICALS INC
Approved: May 5, 2016 | RLD: No | RS: No | Type: DISCN